FAERS Safety Report 8326947-1 (Version None)
Quarter: 2012Q2

REPORT INFORMATION
  Report Type: 
  Country: None (occurrence: None)
  Receive Date: 20120501
  Receipt Date: 20110927
  Transmission Date: 20120825
  Serious: Yes (Hospitalization)
  Sender: FDA-Public Use
  Company Number: US-SANOFI-AVENTIS-2011SA063465

PATIENT
  Age: 36 Year
  Sex: Male

DRUGS (1)
  1. APIDRA [Suspect]
     Dosage: ABOUT 30-35 UNITS DAY VIA PUMP
     Route: 058

REACTIONS (2)
  - MALAISE [None]
  - BLOOD GLUCOSE INCREASED [None]
